FAERS Safety Report 10597469 (Version 2)
Quarter: 2014Q4

REPORT INFORMATION
  Report Type: Report from Study
  Country: JP (occurrence: JP)
  Receive Date: 20141121
  Receipt Date: 20141121
  Transmission Date: 20150529
  Serious: Yes (Other)
  Sender: FDA-Public Use
  Company Number: JP-AMGEN-JPNCT2014011346

PATIENT
  Age: 73 Year
  Sex: Male
  Weight: 61 kg

DRUGS (9)
  1. CARDENALIN [Concomitant]
     Active Substance: DOXAZOSIN MESYLATE
     Route: 048
  2. MICARDIS [Concomitant]
     Active Substance: TELMISARTAN
     Dosage: UNK
     Route: 048
  3. ADALAT [Concomitant]
     Active Substance: NIFEDIPINE
     Route: 048
  4. DARBEPOETIN ALFA - KHK [Suspect]
     Active Substance: DARBEPOETIN ALFA
     Indication: NEPHROGENIC ANAEMIA
     Dosage: 120 MUG, QD
     Route: 058
     Dates: start: 20110809
  5. EQUA [Concomitant]
     Active Substance: VILDAGLIPTIN
     Dosage: UNK
     Route: 048
  6. KREMEZIN [Concomitant]
     Active Substance: ACTIVATED CHARCOAL
     Indication: DIABETIC NEPHROPATHY
     Dosage: UNK
     Route: 048
  7. TANKARU [Concomitant]
     Dosage: UNK
     Route: 048
  8. AUZEI [Concomitant]
     Active Substance: CARBAZOCHROME SODIUM SULFONATE
     Dosage: UNK
     Route: 048
  9. ATELEC [Concomitant]
     Active Substance: CILNIDIPINE
     Dosage: UNK
     Route: 048

REACTIONS (4)
  - Glaucoma [Recovering/Resolving]
  - Retinal haemorrhage [Recovering/Resolving]
  - Hyperkalaemia [Recovered/Resolved]
  - Metabolic acidosis [Recovering/Resolving]

NARRATIVE: CASE EVENT DATE: 20120214
